FAERS Safety Report 12557018 (Version 2)
Quarter: 2016Q4

REPORT INFORMATION
  Report Type: Report from Study
  Country: US (occurrence: US)
  Receive Date: 20160714
  Receipt Date: 20161003
  Transmission Date: 20170207
  Serious: Yes (Other)
  Sender: FDA-Public Use
  Company Number: US-TEVA-676601USA

PATIENT
  Age: 60 Year
  Sex: Male

DRUGS (17)
  1. CLOZAPINE. [Suspect]
     Active Substance: CLOZAPINE
     Route: 048
     Dates: start: 20160531
  2. CLOZAPINE. [Suspect]
     Active Substance: CLOZAPINE
     Route: 048
     Dates: start: 20160621, end: 20160623
  3. LITHIUM. [Concomitant]
     Active Substance: LITHIUM
     Dates: start: 20160523
  4. DOCUSATE SODIUM. [Concomitant]
     Active Substance: DOCUSATE SODIUM
     Dates: start: 20160601
  5. CLOZAPINE. [Suspect]
     Active Substance: CLOZAPINE
     Route: 048
     Dates: start: 20160522
  6. METHYLCELLULOSE [Concomitant]
     Active Substance: METHYLCELLULOSES
     Dates: start: 20160601
  7. SULFAMETHOXAZOLE/T [Concomitant]
     Dates: start: 20160606
  8. CLOZAPINE. [Suspect]
     Active Substance: CLOZAPINE
     Route: 048
     Dates: start: 20160519, end: 20160623
  9. PRAVASTATIN. [Concomitant]
     Active Substance: PRAVASTATIN
     Dates: start: 20160601
  10. BENZTROPINE [Concomitant]
     Active Substance: BENZTROPINE
     Dates: start: 20160620
  11. RANITIDINE. [Concomitant]
     Active Substance: RANITIDINE
     Dates: start: 20160606
  12. HALOPERIDOL. [Concomitant]
     Active Substance: HALOPERIDOL
     Dates: start: 20160615
  13. CLOTRIMAZOLE. [Concomitant]
     Active Substance: CLOTRIMAZOLE
     Dates: start: 20160603
  14. IBUPROFEN. [Concomitant]
     Active Substance: IBUPROFEN
     Dates: start: 20160606
  15. PROBIOTIC [Concomitant]
     Active Substance: PROBIOTICS NOS
     Dates: start: 20160606
  16. OLANZAPINE. [Concomitant]
     Active Substance: OLANZAPINE
     Dates: start: 20160623
  17. OMBPRAZOLE [Concomitant]
     Dates: start: 20160601

REACTIONS (1)
  - Granulocytopenia [Recovered/Resolved]

NARRATIVE: CASE EVENT DATE: 20160704
